FAERS Safety Report 4431272-5 (Version None)
Quarter: 2004Q3

REPORT INFORMATION
  Report Type: 
  Country: None (occurrence: None)
  Receive Date: 20040823
  Receipt Date: 20040823
  Transmission Date: 20050211
  Serious: Yes (Hospitalization, Disabling, Other)
  Sender: FDA-Public Use
  Company Number: None

PATIENT
  Sex: Female
  Weight: 62.5964 kg

DRUGS (4)
  1. ZOLOFT [Suspect]
     Indication: STRESS SYMPTOMS
     Dosage: IN RECORD  ORIG.RPTED  ORAL
     Route: 048
     Dates: start: 19921110, end: 19931121
  2. ATYPICAL ANTIPSYCHOTICS [Suspect]
     Indication: BIPOLAR DISORDER
     Dosage: IN RECORD   ORIG.RPTED  ORAL
     Route: 048
     Dates: start: 20000410, end: 20040815
  3. ATYPICAL ANTIPSYCHOTICS [Suspect]
     Indication: HYPOMANIA
     Dosage: IN RECORD   ORIG.RPTED  ORAL
     Route: 048
     Dates: start: 20000410, end: 20040815
  4. ATYPICAL ANTIPSYCHOTICS [Suspect]
     Indication: MANIA
     Dosage: IN RECORD   ORIG.RPTED  ORAL
     Route: 048
     Dates: start: 20000410, end: 20040815

REACTIONS (9)
  - BIPOLAR DISORDER [None]
  - DEPRESSIVE SYMPTOM [None]
  - HYPOMANIA [None]
  - MANIA [None]
  - MYCOSIS FUNGOIDES [None]
  - SELF-INJURIOUS IDEATION [None]
  - STEVENS-JOHNSON SYNDROME [None]
  - SUICIDAL IDEATION [None]
  - THERAPY NON-RESPONDER [None]
